FAERS Safety Report 10518610 (Version 4)
Quarter: 2014Q4

REPORT INFORMATION
  Report Type: Spontaneous
  Country: US (occurrence: US)
  Receive Date: 20141015
  Receipt Date: 20141015
  Transmission Date: 20150528
  Serious: Yes (Other)
  Sender: FDA-Public Use
  Company Number: US-LEO PHARMA-225101

PATIENT
  Sex: Female

DRUGS (1)
  1. PICATO [Suspect]
     Active Substance: INGENOL MEBUTATE
     Indication: ACTINIC KERATOSIS
     Route: 061
     Dates: start: 20131203

REACTIONS (12)
  - Application site vesicles [Recovering/Resolving]
  - Eye swelling [Recovering/Resolving]
  - Application site erythema [Recovering/Resolving]
  - Application site discharge [Recovering/Resolving]
  - Application site pustules [Recovering/Resolving]
  - Hypersensitivity [Recovering/Resolving]
  - Application site scab [Recovering/Resolving]
  - Drug administration error [Recovering/Resolving]
  - Application site exfoliation [Recovering/Resolving]
  - Application site pain [Recovering/Resolving]
  - Pharyngeal oedema [Recovering/Resolving]
  - Drug administered at inappropriate site [Not Recovered/Not Resolved]
